FAERS Safety Report 10975876 (Version 12)
Quarter: 2016Q3

REPORT INFORMATION
  Report Type: Report from Study
  Country: CA (occurrence: CA)
  Receive Date: 20150401
  Receipt Date: 20160712
  Transmission Date: 20161109
  Serious: Yes (Hospitalization, Other)
  Sender: FDA-Public Use
  Company Number: PHHY2014CA142506

PATIENT
  Age: 75 Year
  Sex: Female

DRUGS (2)
  1. SANDOSTATIN LAR DEPOT [Suspect]
     Active Substance: OCTREOTIDE ACETATE
     Dosage: 40 MG, QMO, EVERY 28 DAYS / EVERY 4 WEEKS
     Route: 030
  2. SANDOSTATIN LAR DEPOT [Suspect]
     Active Substance: OCTREOTIDE ACETATE
     Indication: NEUROENDOCRINE CARCINOMA METASTATIC
     Dosage: 30 MG, QMO, EVERY 4 WEEKS
     Route: 030
     Dates: start: 20130219

REACTIONS (29)
  - Intervertebral disc degeneration [Unknown]
  - Osteosclerosis [Unknown]
  - Constipation [Unknown]
  - Blood pressure decreased [Unknown]
  - Blood pressure systolic increased [Unknown]
  - Psoriasis [Unknown]
  - Abasia [Unknown]
  - Neoplasm progression [Recovering/Resolving]
  - Malignant neoplasm progression [Recovering/Resolving]
  - Body temperature increased [Unknown]
  - Muscle strain [Unknown]
  - Back pain [Unknown]
  - Peripheral swelling [Unknown]
  - Haematochezia [Unknown]
  - Cystitis [Unknown]
  - Cardiac murmur [Unknown]
  - Pruritus [Unknown]
  - Malaise [Unknown]
  - Pollakiuria [Unknown]
  - Diarrhoea [Unknown]
  - Chest pain [Unknown]
  - Nausea [Not Recovered/Not Resolved]
  - Influenza like illness [Unknown]
  - High density lipoprotein increased [Unknown]
  - Body temperature decreased [Recovered/Resolved]
  - Fatigue [Not Recovered/Not Resolved]
  - Blood glucose increased [Unknown]
  - Rectal haemorrhage [Recovering/Resolving]
  - Blood pressure increased [Unknown]

NARRATIVE: CASE EVENT DATE: 2014
